FAERS Safety Report 14310582 (Version 4)
Quarter: 2019Q2

REPORT INFORMATION
  Report Type: Spontaneous
  Country: ES (occurrence: ES)
  Receive Date: 20171220
  Receipt Date: 20190501
  Transmission Date: 20190711
  Serious: Yes (Death, Other)
  Sender: FDA-Public Use
  Company Number: ES-MYLANLABS-2017M1079659

PATIENT
  Age: 89 Year
  Sex: Female

DRUGS (4)
  1. TRANGOREX [Interacting]
     Active Substance: AMIODARONE HYDROCHLORIDE
     Indication: ARRHYTHMIA
     Dosage: 100 MILLIGRAM, QD (EXCEPT THURSDAYS AND SUNDAYS)
     Route: 048
     Dates: start: 2017
  2. QUETIAPINE. [Suspect]
     Active Substance: QUETIAPINE
     Indication: MIXED DEMENTIA
     Dosage: 100 MG, QD
     Route: 048
     Dates: start: 201704
  3. OMEPRAZOLE. [Interacting]
     Active Substance: OMEPRAZOLE
     Indication: PROPHYLAXIS AGAINST GASTROINTESTINAL ULCER
     Dosage: 20 MG, QD
     Route: 048
     Dates: start: 2017
  4. DIFLUCAN [Interacting]
     Active Substance: FLUCONAZOLE
     Indication: ORAL CANDIDIASIS
     Dosage: 2.5 MILLILITER, QD
     Route: 048
     Dates: start: 201704

REACTIONS (2)
  - Cardiac failure [Fatal]
  - Drug interaction [Fatal]

NARRATIVE: CASE EVENT DATE: 201705
